FAERS Safety Report 10723051 (Version 1)
Quarter: 2015Q1

REPORT INFORMATION
  Report Type: Spontaneous
  Country: FR (occurrence: None)
  Receive Date: 20150114
  Receipt Date: 20150114
  Transmission Date: 20150721
  Serious: Yes (Hospitalization, Other)
  Sender: FDA-Public Use
  Company Number: FR2015GSK001414

PATIENT
  Age: 34 Year
  Sex: Male

DRUGS (23)
  1. LAMALINE (CAFFEINE + PAPAVER SOMNIFERUM + PARACETAMOL) [Concomitant]
  2. NOVORAPID [Concomitant]
     Active Substance: INSULIN ASPART
  3. ZYVOXID [Suspect]
     Active Substance: LINEZOLID
     Indication: PRODUCT USED FOR UNKNOWN INDICATION
     Route: 048
     Dates: start: 20100411
  4. HEXAQUINE (NIAOQULI OIL + QUIINE BENZOATE + THIAMINE HYDROCHLORIDE) [Concomitant]
  5. ARANESP [Concomitant]
     Active Substance: DARBEPOETIN ALFA
  6. CARDENSIEL (BISOPROLOL FUMARATE) (BISOPROLOL FUMARATE) [Concomitant]
     Active Substance: BISOPROLOL
  7. ZIAGEN [Suspect]
     Active Substance: ABACAVIR SULFATE
     Indication: HIV INFECTION
     Route: 048
     Dates: start: 20100115
  8. SPECIAFOLDINE (FOLIC ACID) [Concomitant]
     Active Substance: FOLIC ACID
  9. NEURONTIN [Concomitant]
     Active Substance: GABAPENTIN
  10. EPIVIR [Suspect]
     Active Substance: LAMIVUDINE
     Indication: HIV INFECTION
     Dosage: 50 MG, 1D
     Route: 048
     Dates: start: 20100115
  11. KALETRA [Suspect]
     Active Substance: LOPINAVIR\RITONAVIR
     Indication: HIV INFECTION
     Route: 048
     Dates: start: 20100115, end: 201301
  12. TRIFLUCAN (FLUCONAZOLE) (FLUCONAZOLE) [Concomitant]
     Active Substance: FLUCONAZOLE
  13. LANTUS [Concomitant]
     Active Substance: INSULIN GLARGINE
  14. VENOFER (IRON SUCROSE) [Concomitant]
  15. OMEPRAZOLE (OMEPRAZOLE) UNKNOWN [Suspect]
     Active Substance: OMEPRAZOLE
     Indication: PRODUCT USED FOR UNKNOWN INDICATION
     Dosage: 20 MG, 1D
     Route: 048
  16. LEVOCARNIL (LEVOCARNITINE) [Concomitant]
  17. RIVOTRIL [Concomitant]
     Active Substance: CLONAZEPAM
  18. GENTAMYCIN (FLUCONAZOLE) [Concomitant]
  19. DEBRIDAT (TRIMEBUTINE) [Concomitant]
  20. PIPERACILLIN + TAZOBACTAM (PIPERACILLIN + TAZOBACTAM) [Concomitant]
  21. LASILIX (FUROSEMIDE) [Concomitant]
     Active Substance: FUROSEMIDE
  22. KAYELALATE (SODIUM POLYSTYRENE SULFONATE) [Concomitant]
  23. RENTIEC (ENALAPRIL MALEATE) [Concomitant]

REACTIONS (2)
  - Polyneuropathy [None]
  - Motor dysfunction [None]

NARRATIVE: CASE EVENT DATE: 201005
